FAERS Safety Report 5446732-8 (Version None)
Quarter: 2007Q3

REPORT INFORMATION
  Report Type: 
  Country: None (occurrence: None)
  Receive Date: 20070907
  Receipt Date: 20070831
  Transmission Date: 20080115
  Serious: No
  Sender: FDA-Public Use
  Company Number: US-BOEHRINGER INGELHEIM PHARMACEUTICALS, INC.-2007-BP-04401BP

PATIENT
  Sex: Male

DRUGS (7)
  1. ATROVENT [Suspect]
     Indication: NASAL OPERATION
     Route: 045
     Dates: start: 20060215
  2. ATROVENT [Suspect]
     Indication: EAR, NOSE AND THROAT EXAMINATION
  3. XYLOCAINE [Concomitant]
     Indication: EAR, NOSE AND THROAT EXAMINATION
     Route: 045
     Dates: start: 20060215
  4. PHENYLEPHRINE [Concomitant]
     Indication: EAR, NOSE AND THROAT EXAMINATION
     Route: 045
     Dates: start: 20060215
  5. BACTRIM [Concomitant]
  6. KOTAC [Concomitant]
  7. PREDNISONE [Concomitant]

REACTIONS (2)
  - DIZZINESS [None]
  - ROAD TRAFFIC ACCIDENT [None]
